FAERS Safety Report 9724020 (Version 1)
Quarter: 2013Q4

REPORT INFORMATION
  Report Type: Spontaneous
  Country: US (occurrence: US)
  Receive Date: 20131202
  Receipt Date: 20131202
  Transmission Date: 20140711
  Serious: No
  Sender: FDA-Public Use
  Company Number: US-AMGEN-USASP2013080054

PATIENT
  Sex: 0

DRUGS (3)
  1. ENBREL [Suspect]
     Indication: RHEUMATOID ARTHRITIS
     Dosage: UNK UNK, 2 TIMES/WK
     Route: 065
  2. PLAQUENIL                          /00072602/ [Concomitant]
     Dosage: UNK
  3. CELEBREX [Concomitant]
     Dosage: UNK

REACTIONS (6)
  - Immune system disorder [Unknown]
  - Depression [Unknown]
  - Anxiety [Unknown]
  - Pain [Unknown]
  - Bronchitis [Unknown]
  - Chronic sinusitis [Unknown]
